FAERS Safety Report 25152848 (Version 1)
Quarter: 2025Q2

REPORT INFORMATION
  Report Type: Spontaneous
  Country: US (occurrence: US)
  Receive Date: 20250403
  Receipt Date: 20250403
  Transmission Date: 20250716
  Serious: Yes (Hospitalization, Other)
  Sender: NOVO NORDISK
  Company Number: US-NOVOPROD-1398583

PATIENT
  Age: 70 Year
  Sex: Female

DRUGS (4)
  1. OZEMPIC [Suspect]
     Active Substance: SEMAGLUTIDE
     Indication: Obesity
     Dosage: 2 MG, QW
     Route: 058
     Dates: start: 2023
  2. OZEMPIC [Suspect]
     Active Substance: SEMAGLUTIDE
     Indication: Obstructive sleep apnoea syndrome
  3. OZEMPIC [Suspect]
     Active Substance: SEMAGLUTIDE
     Indication: Oesophageal spasm
  4. OZEMPIC [Suspect]
     Active Substance: SEMAGLUTIDE
     Indication: Osteoarthritis

REACTIONS (10)
  - Feeling abnormal [Not Recovered/Not Resolved]
  - Epilepsy [Not Recovered/Not Resolved]
  - Blood glucose decreased [Recovered/Resolved]
  - Dizziness [Not Recovered/Not Resolved]
  - Nausea [Unknown]
  - Vomiting [Unknown]
  - Diarrhoea [Unknown]
  - Abdominal pain [Unknown]
  - Overdose [Not Recovered/Not Resolved]
  - Product use in unapproved indication [Unknown]

NARRATIVE: CASE EVENT DATE: 20250324
